FAERS Safety Report 4455427-9 (Version None)
Quarter: 2004Q3

REPORT INFORMATION
  Report Type: 
  Country: None (occurrence: None)
  Receive Date: 20040922
  Receipt Date: 20040914
  Transmission Date: 20050211
  Serious: Yes (Other)
  Sender: FDA-Public Use
  Company Number: US-JNJFOC-20040904859

PATIENT
  Sex: Female
  Weight: 72.12 kg

DRUGS (6)
  1. REMICADE [Suspect]
     Indication: CROHN'S DISEASE
     Route: 042
  2. ASACOL [Concomitant]
     Indication: CROHN'S DISEASE
  3. SYNTHROID [Concomitant]
     Indication: HYPOTHYROIDISM
  4. ZANTAC [Concomitant]
  5. VICODIN [Concomitant]
  6. VICODIN [Concomitant]
     Indication: PAIN
     Dosage: PRN

REACTIONS (5)
  - ALOPECIA [None]
  - BLOOD CHOLESTEROL INCREASED [None]
  - DRUG INEFFECTIVE [None]
  - KNEE OPERATION [None]
  - THERAPEUTIC RESPONSE DECREASED [None]
